FAERS Safety Report 21832864 (Version 4)
Quarter: 2023Q1

REPORT INFORMATION
  Report Type: Report from Study
  Country: CN (occurrence: CN)
  Receive Date: 20230106
  Receipt Date: 20230313
  Transmission Date: 20230418
  Serious: Yes (Hospitalization)
  Sender: FDA-Public Use
  Company Number: CN-JNJFOC-20230106675

PATIENT
  Age: 52 Year
  Sex: Female
  Weight: 44 kg

DRUGS (46)
  1. AMIVANTAMAB [Suspect]
     Active Substance: AMIVANTAMAB
     Indication: Non-small cell lung cancer metastatic
     Route: 042
     Dates: start: 20221222, end: 20221229
  2. AMIVANTAMAB [Suspect]
     Active Substance: AMIVANTAMAB
     Dosage: CYCLE 1, DAY 15
     Route: 065
     Dates: start: 20230106
  3. CARBOPLATIN [Suspect]
     Active Substance: CARBOPLATIN
     Indication: Non-small cell lung cancer metastatic
     Route: 042
     Dates: start: 20221222, end: 20221222
  4. PEMETREXED [Suspect]
     Active Substance: PEMETREXED
     Indication: Non-small cell lung cancer metastatic
     Route: 042
     Dates: start: 20221222, end: 20221222
  5. PREGABALIN [Concomitant]
     Active Substance: PREGABALIN
     Indication: Cancer pain
     Route: 048
     Dates: start: 20221118
  6. ACETAMINOPHEN [Concomitant]
     Active Substance: ACETAMINOPHEN
     Indication: Prophylaxis
     Route: 048
     Dates: start: 20221222, end: 20221222
  7. ACETAMINOPHEN [Concomitant]
     Active Substance: ACETAMINOPHEN
     Indication: Premedication
     Route: 048
     Dates: start: 20221223, end: 20221223
  8. ACETAMINOPHEN [Concomitant]
     Active Substance: ACETAMINOPHEN
     Route: 048
     Dates: start: 20221229, end: 20221229
  9. ACETAMINOPHEN [Concomitant]
     Active Substance: ACETAMINOPHEN
     Route: 048
     Dates: start: 20230112, end: 20230112
  10. ACETAMINOPHEN [Concomitant]
     Active Substance: ACETAMINOPHEN
     Route: 042
     Dates: start: 20230202, end: 20230202
  11. ACETAMINOPHEN [Concomitant]
     Active Substance: ACETAMINOPHEN
     Route: 048
     Dates: start: 20230202, end: 20230202
  12. ACETAMINOPHEN [Concomitant]
     Active Substance: ACETAMINOPHEN
     Route: 048
     Dates: start: 20230224, end: 20230224
  13. DICLOFENAC [Concomitant]
     Active Substance: DICLOFENAC
     Indication: Non-cardiac chest pain
     Route: 048
     Dates: start: 20230118
  14. DICLOFENAC [Concomitant]
     Active Substance: DICLOFENAC
     Indication: Musculoskeletal chest pain
  15. DEXAMETHASONE [Concomitant]
     Active Substance: DEXAMETHASONE
     Indication: Premedication
     Route: 048
     Dates: start: 20221221, end: 20221223
  16. DEXAMETHASONE [Concomitant]
     Active Substance: DEXAMETHASONE
     Route: 042
     Dates: start: 20221222, end: 20221222
  17. DEXAMETHASONE [Concomitant]
     Active Substance: DEXAMETHASONE
     Route: 042
     Dates: start: 20221223, end: 20221223
  18. DEXAMETHASONE [Concomitant]
     Active Substance: DEXAMETHASONE
     Route: 042
     Dates: start: 20221229, end: 20221229
  19. DEXAMETHASONE [Concomitant]
     Active Substance: DEXAMETHASONE
     Route: 048
     Dates: start: 20230111, end: 20230113
  20. DEXAMETHASONE [Concomitant]
     Active Substance: DEXAMETHASONE
     Route: 042
     Dates: start: 20230112, end: 20230112
  21. DEXAMETHASONE [Concomitant]
     Active Substance: DEXAMETHASONE
     Route: 048
     Dates: start: 20230201, end: 20230203
  22. DEXAMETHASONE [Concomitant]
     Active Substance: DEXAMETHASONE
     Route: 048
     Dates: start: 20230222, end: 20230225
  23. DEXAMETHASONE [Concomitant]
     Active Substance: DEXAMETHASONE
     Route: 042
     Dates: start: 20230224, end: 20230224
  24. TROPISETRON [Concomitant]
     Active Substance: TROPISETRON
     Indication: Premedication
     Route: 042
     Dates: start: 20221222, end: 20221222
  25. TROPISETRON [Concomitant]
     Active Substance: TROPISETRON
     Route: 042
     Dates: start: 20230112, end: 20230112
  26. TROPISETRON [Concomitant]
     Active Substance: TROPISETRON
     Route: 042
     Dates: start: 20230202, end: 20230202
  27. TROPISETRON [Concomitant]
     Active Substance: TROPISETRON
     Route: 042
     Dates: start: 20230224, end: 20230224
  28. VITAMIN B12 INJEKTOP [Concomitant]
     Indication: Premedication
     Route: 030
     Dates: start: 20221222, end: 20221222
  29. ABH [Concomitant]
     Indication: Prophylaxis
     Route: 030
     Dates: start: 20221222, end: 20221223
  30. FAMOTIDINE [Concomitant]
     Active Substance: FAMOTIDINE
     Indication: Prophylaxis
     Route: 042
     Dates: start: 20221222, end: 20221223
  31. FAMOTIDINE [Concomitant]
     Active Substance: FAMOTIDINE
     Route: 042
     Dates: start: 20221229, end: 20221229
  32. FAMOTIDINE [Concomitant]
     Active Substance: FAMOTIDINE
     Route: 042
     Dates: start: 20230112, end: 20230112
  33. FAMOTIDINE [Concomitant]
     Active Substance: FAMOTIDINE
     Route: 042
     Dates: start: 20230202, end: 20230202
  34. FAMOTIDINE [Concomitant]
     Active Substance: FAMOTIDINE
     Route: 042
     Dates: start: 20230224, end: 20230224
  35. APREPITANT [Concomitant]
     Active Substance: APREPITANT
     Indication: Premedication
     Route: 048
     Dates: start: 20221222, end: 20221224
  36. APREPITANT [Concomitant]
     Active Substance: APREPITANT
     Route: 048
     Dates: start: 20230112, end: 20230114
  37. APREPITANT [Concomitant]
     Active Substance: APREPITANT
     Route: 048
     Dates: start: 20230202, end: 20230205
  38. APREPITANT [Concomitant]
     Active Substance: APREPITANT
     Route: 048
     Dates: start: 20230224, end: 20230225
  39. ABH [Concomitant]
     Indication: Prophylaxis
     Route: 042
     Dates: start: 20221229, end: 20221229
  40. FLURBIPROFEN [Concomitant]
     Active Substance: FLURBIPROFEN
     Indication: Non-cardiac chest pain
     Route: 062
     Dates: start: 20230202
  41. DIPHENHYDRAMINE [Concomitant]
     Active Substance: DIPHENHYDRAMINE
     Indication: Prophylaxis
     Route: 030
     Dates: start: 20230202, end: 20230202
  42. DIPHENHYDRAMINE [Concomitant]
     Active Substance: DIPHENHYDRAMINE
     Route: 030
     Dates: start: 20230224, end: 20230224
  43. DIPHENHYDRAMINE [Concomitant]
     Active Substance: DIPHENHYDRAMINE
     Route: 030
     Dates: start: 20230112, end: 20230112
  44. LACTULOSE [Concomitant]
     Active Substance: LACTULOSE
     Indication: Constipation
     Route: 048
     Dates: start: 20230224
  45. OXYCODONE/APAP [Concomitant]
     Active Substance: ACETAMINOPHEN\OXYCODONE HYDROCHLORIDE
     Indication: Non-cardiac chest pain
     Route: 048
     Dates: start: 20230224, end: 20230224
  46. OXYCODONE/APAP [Concomitant]
     Active Substance: ACETAMINOPHEN\OXYCODONE HYDROCHLORIDE
     Indication: Musculoskeletal chest pain

REACTIONS (1)
  - Myelosuppression [Recovered/Resolved]

NARRATIVE: CASE EVENT DATE: 20230103
